FAERS Safety Report 6696398-4 (Version None)
Quarter: 2010Q2

REPORT INFORMATION
  Report Type: 
  Country: None (occurrence: None)
  Receive Date: 20100421
  Receipt Date: 20100204
  Transmission Date: 20101027
  Serious: No
  Sender: FDA-Public Use
  Company Number: US-000023

PATIENT
  Sex: Male
  Weight: 74.8435 kg

DRUGS (5)
  1. KUVAN [Suspect]
     Indication: PHENYLKETONURIA
     Dosage: (1500 MG QD ORAL), (800 MG QD ORAL)
     Route: 048
     Dates: start: 20100107
  2. TOPAMAX [Concomitant]
  3. PROTONIX /01263201/ [Concomitant]
  4. LEXAPRO [Concomitant]
  5. NUTRIENTS WITHOUT PHENYLALANINE [Concomitant]

REACTIONS (1)
  - MIGRAINE [None]
